FAERS Safety Report 25899114 (Version 2)
Quarter: 2025Q4

REPORT INFORMATION
  Report Type: Spontaneous
  Country: US (occurrence: US)
  Receive Date: 20251009
  Receipt Date: 20251013
  Transmission Date: 20260118
  Serious: Yes (Death)
  Sender: CSL BEHRING
  Company Number: US-BEH-2025220724

PATIENT
  Age: 67 Year
  Sex: Male
  Weight: 80 kg

DRUGS (1)
  1. MIRCERA [Suspect]
     Active Substance: METHOXY POLYETHYLENE GLYCOL-EPOETIN BETA
     Indication: Nephrogenic anaemia
     Dosage: 50 ?G, QOW
     Route: 040
     Dates: start: 20250927, end: 20250927

REACTIONS (4)
  - Cold sweat [Fatal]
  - Flushing [Fatal]
  - Erythema [Fatal]
  - Agonal respiration [Fatal]

NARRATIVE: CASE EVENT DATE: 20250927
